FAERS Safety Report 23963463 (Version 1)
Quarter: 2024Q2

REPORT INFORMATION
  Report Type: Spontaneous
  Country: JP (occurrence: None)
  Receive Date: 20240611
  Receipt Date: 20240611
  Transmission Date: 20240715
  Serious: Yes (Death, Other)
  Sender: FDA-Public Use
  Company Number: 2024A132829

PATIENT
  Age: 86 Year
  Sex: Female

DRUGS (6)
  1. TAGRISSO [Suspect]
     Active Substance: OSIMERTINIB
     Indication: Non-small cell lung cancer
     Route: 048
     Dates: start: 20240106, end: 20240125
  2. FLAGYL [Suspect]
     Active Substance: METRONIDAZOLE\METRONIDAZOLE HYDROCHLORIDE
     Indication: Infection
     Route: 048
     Dates: start: 20240113, end: 20240125
  3. LEVOFLOXACIN HEMIHYDRATE [Concomitant]
     Active Substance: LEVOFLOXACIN
     Dosage: DOSE UNKNOWN
     Route: 048
     Dates: start: 20240109, end: 20240125
  4. CARBOCYSTEINE [Concomitant]
     Active Substance: CARBOCYSTEINE
     Dosage: DOSE UNKNOWN
     Route: 048
     Dates: start: 20240109, end: 20240125
  5. POTASSIUM ASPARTATE [Concomitant]
     Active Substance: POTASSIUM ASPARTATE
     Dosage: DOSE UNKNOWN
     Route: 048
     Dates: start: 20240106, end: 20240113
  6. METRONIDAZOLE [Concomitant]
     Active Substance: METRONIDAZOLE
     Dosage: DOSE UNKNOWN
     Route: 041
     Dates: start: 20240125, end: 20240127

REACTIONS (8)
  - Left ventricular dysfunction [Fatal]
  - Pancreatitis [Recovering/Resolving]
  - Multi-organ disorder [Unknown]
  - Hyponatraemia [Unknown]
  - Renal impairment [Unknown]
  - Pleural effusion [Unknown]
  - Depressed level of consciousness [Unknown]
  - Oedema peripheral [Unknown]

NARRATIVE: CASE EVENT DATE: 20240113
